FAERS Safety Report 9640962 (Version 1)
Quarter: 2013Q4

REPORT INFORMATION
  Report Type: Spontaneous
  Country: FR (occurrence: None)
  Receive Date: 20131021
  Receipt Date: 20131021
  Transmission Date: 20140711
  Serious: Yes (Other)
  Sender: FDA-Public Use
  Company Number: 2013100065

PATIENT
  Age: 45 Year
  Sex: Female
  Weight: 51.7 kg

DRUGS (4)
  1. ALLERGODIL [Suspect]
     Indication: SEASONAL ALLERGY
     Dosage: (UP TO 10 TO 12 METERED DOES PER DAY), NASAL
     Dates: start: 201204, end: 20120621
  2. PROALLERGODIL (AZELASTINE HYDROCHLORIDE) [Concomitant]
  3. CETIRIZINE BIOGARAN (CETIRIZINE) [Concomitant]
  4. LEVOTHYROX (LEVOTHYROXINE SODIUM) INFUSION [Concomitant]

REACTIONS (2)
  - Anxiety [None]
  - Generalised oedema [None]
